FAERS Safety Report 22377392 (Version 1)
Quarter: 2023Q2

REPORT INFORMATION
  Report Type: Spontaneous
  Country: CN (occurrence: CN)
  Receive Date: 20230529
  Receipt Date: 20230529
  Transmission Date: 20230721
  Serious: Yes (Other)
  Sender: FDA-Public Use
  Company Number: CN-AMGEN-CHNSP2023088372

PATIENT

DRUGS (2)
  1. EVOLOCUMAB [Suspect]
     Active Substance: EVOLOCUMAB
     Indication: Type IIa hyperlipidaemia
     Dosage: 140 MILLIGRAM, Q2WK
     Route: 065
  2. EVOLOCUMAB [Suspect]
     Active Substance: EVOLOCUMAB
     Dosage: 140 MILLIGRAM, Q3WK
     Route: 065

REACTIONS (10)
  - Low density lipoprotein decreased [Unknown]
  - Surgery [Unknown]
  - Hypotension [Unknown]
  - Low density lipoprotein increased [Unknown]
  - Off label use [Unknown]
  - Drug interaction [Unknown]
  - Erythema [Unknown]
  - Myalgia [Unknown]
  - Injection site reaction [Unknown]
  - Drug ineffective [Unknown]
